FAERS Safety Report 8130369-6 (Version None)
Quarter: 2012Q1

REPORT INFORMATION
  Report Type: 
  Country: None (occurrence: None)
  Receive Date: 20120210
  Receipt Date: 20120131
  Transmission Date: 20120608
  Serious: Yes (Death)
  Sender: FDA-Public Use
  Company Number: JP-ALLERGAN-1201932US

PATIENT
  Age: 82 Year
  Sex: Male

DRUGS (14)
  1. LUMIGAN [Suspect]
     Dosage: 1 GTT, QPM
     Route: 047
     Dates: start: 20100826, end: 20110722
  2. LUMIGAN [Suspect]
     Indication: OPEN ANGLE GLAUCOMA
     Dosage: 1 GTT, QD
     Route: 047
     Dates: start: 20100119, end: 20100812
  3. TOCONIJUST [Concomitant]
     Dosage: UNK
     Dates: end: 20110722
  4. LANSOPRAZOLE [Concomitant]
     Dosage: UNK
     Dates: end: 20110722
  5. LATANOPROST [Suspect]
     Dosage: UNK
     Dates: start: 20080701, end: 20100118
  6. HARNAL D [Concomitant]
     Dosage: UNK
     Dates: end: 20110722
  7. BICALUTAMIDE [Concomitant]
     Dosage: UNK
     Dates: end: 20110722
  8. LEDOLPER [Concomitant]
     Dosage: UNK
     Dates: end: 20110722
  9. MIKELAN LA [Concomitant]
     Dosage: UNK
     Route: 047
     Dates: start: 20100907, end: 20110722
  10. EYECARE [Concomitant]
     Dosage: UNK
     Route: 047
     Dates: start: 20100921, end: 20110722
  11. CALCITAMIN [Concomitant]
     Dosage: UNK
     Dates: end: 20110722
  12. NE SOFT [Concomitant]
     Dosage: UNK
     Dates: end: 20110722
  13. ODOMEL [Concomitant]
     Dosage: UNK
     Route: 047
     Dates: start: 20100907, end: 20110722
  14. MECOBAMIDE [Concomitant]
     Dosage: UNK
     Dates: end: 20110722

REACTIONS (5)
  - GROWTH OF EYELASHES [None]
  - DEATH [None]
  - GLAUCOMATOCYCLITIC CRISES [None]
  - CONJUNCTIVITIS ALLERGIC [None]
  - IRITIS [None]
